FAERS Safety Report 6656927-3 (Version None)
Quarter: 2010Q1

REPORT INFORMATION
  Report Type: 
  Country: None (occurrence: None)
  Receive Date: 20100329
  Receipt Date: 20100325
  Transmission Date: 20100710
  Serious: Yes (Hospitalization)
  Sender: FDA-Public Use
  Company Number: US-BRISTOL-MYERS SQUIBB COMPANY-15036080

PATIENT
  Age: 24 Year
  Sex: Male
  Weight: 79 kg

DRUGS (1)
  1. IXABEPILONE [Suspect]
     Indication: SYNOVIAL SARCOMA
     Dosage: 8MG/M2 OVER 1HR ON DAYS 1-5 21 DAY CYCLE
     Route: 042
     Dates: start: 20060719, end: 20060723

REACTIONS (7)
  - ABDOMINAL PAIN [None]
  - ARTHRALGIA [None]
  - DEHYDRATION [None]
  - FATIGUE [None]
  - MYALGIA [None]
  - NEUTROPHIL COUNT INCREASED [None]
  - RHINITIS ALLERGIC [None]
